FAERS Safety Report 23191234 (Version 6)
Quarter: 2024Q4

REPORT INFORMATION
  Report Type: Spontaneous
  Country: CA (occurrence: CA)
  Receive Date: 20231116
  Receipt Date: 20241122
  Transmission Date: 20250114
  Serious: Yes (Hospitalization, Other)
  Sender: PFIZER
  Company Number: CA-PFIZER INC-202300267823

PATIENT
  Age: 44 Year
  Sex: Female

DRUGS (2)
  1. ABRILADA [Suspect]
     Active Substance: ADALIMUMAB-AFZB
     Indication: Uveitis
     Dosage: 1 DF, 80 MG ON WEEK 0, THEN 40 MG EVERY 2 WEEKS FROM WEEK 1, PREFILLED SYRINGE
     Route: 058
     Dates: start: 20230727, end: 202405
  2. PREDNISONE [Concomitant]
     Active Substance: PREDNISONE
     Dosage: 1 DF

REACTIONS (8)
  - Disseminated varicella zoster virus infection [Unknown]
  - Glaucoma [Recovering/Resolving]
  - Cataract [Unknown]
  - Fatigue [Not Recovered/Not Resolved]
  - Depression [Unknown]
  - Corneal lesion [Unknown]
  - Post procedural complication [Unknown]
  - Immune system disorder [Unknown]

NARRATIVE: CASE EVENT DATE: 20230101
